FAERS Safety Report 5782696-5 (Version None)
Quarter: 2008Q2

REPORT INFORMATION
  Report Type: 
  Country: None (occurrence: None)
  Receive Date: 20080619
  Receipt Date: 20080616
  Transmission Date: 20081010
  Serious: Yes (Other)
  Sender: FDA-Public Use
  Company Number: 2008SP011815

PATIENT
  Age: 49 Year
  Sex: Male
  Weight: 76.7033 kg

DRUGS (5)
  1. PEG-INTRON [Suspect]
     Indication: HEPATITIS C
  2. PEG-INTRON [Suspect]
     Indication: LYMPHOMA
  3. COPEGUS [Suspect]
     Indication: HEPATITIS C
  4. COPEGUS [Suspect]
     Indication: LYMPHOMA
  5. CHEMOTHERAPY [Concomitant]

REACTIONS (5)
  - ASTHENIA [None]
  - DISEASE RECURRENCE [None]
  - LEUKOPENIA [None]
  - LYMPHOMA [None]
  - NEUTROPENIA [None]
